FAERS Safety Report 5643298-4 (Version None)
Quarter: 2008Q1

REPORT INFORMATION
  Report Type: 
  Country: None (occurrence: None)
  Receive Date: 20080228
  Receipt Date: 20071109
  Transmission Date: 20080703
  Serious: Yes (Other)
  Sender: FDA-Public Use
  Company Number: JP-ASTRAZENECA-2007AP07220

PATIENT
  Age: 60 Year
  Sex: Female

DRUGS (4)
  1. CRESTOR [Suspect]
     Indication: HYPERCHOLESTEROLAEMIA
     Route: 048
     Dates: start: 20071103, end: 20071108
  2. CRESTOR [Suspect]
     Route: 048
     Dates: start: 20071101, end: 20071201
  3. CRESTOR [Suspect]
     Route: 048
     Dates: start: 20080101
  4. UNKNOWNDRUG [Concomitant]
     Dosage: DOSE UNKNOWN
     Route: 065

REACTIONS (1)
  - LIVER DISORDER [None]
